FAERS Safety Report 17851363 (Version 2)
Quarter: 2020Q2

REPORT INFORMATION
  Report Type: Spontaneous
  Country: BR (occurrence: BR)
  Receive Date: 20200602
  Receipt Date: 20200609
  Transmission Date: 20200714
  Serious: Yes (Death, Life-Threatening, Hospitalization, Other)
  Sender: FDA-Public Use
  Company Number: BR-PFIZER INC-2020213407

PATIENT
  Age: 29 Year
  Sex: Female

DRUGS (4)
  1. METHYLPREDNISOLONE ACETATE. [Suspect]
     Active Substance: METHYLPREDNISOLONE ACETATE
     Dosage: UNK, PULSE THERAPY
     Route: 042
  2. METHYLPREDNISOLONE ACETATE. [Suspect]
     Active Substance: METHYLPREDNISOLONE ACETATE
     Indication: SYSTEMIC LUPUS ERYTHEMATOSUS
     Dosage: UNK, NEW COURSE OF PULSE THERAPY
     Route: 042
  3. MYCOPHENOLATE MOFETIL. [Suspect]
     Active Substance: MYCOPHENOLATE MOFETIL
     Indication: SYSTEMIC LUPUS ERYTHEMATOSUS
     Dosage: UNK
  4. PREDNISONE. [Suspect]
     Active Substance: PREDNISONE
     Indication: SYSTEMIC LUPUS ERYTHEMATOSUS
     Dosage: 1 MG/KG, 1X/DAY (DAILY)
     Route: 048

REACTIONS (8)
  - Azotaemia [Unknown]
  - Meningoencephalitis bacterial [Fatal]
  - Listeriosis [Fatal]
  - Multiple organ dysfunction syndrome [Fatal]
  - Oliguria [Unknown]
  - Brain abscess [Fatal]
  - Nosocomial infection [Fatal]
  - Coma [Fatal]
